FAERS Safety Report 9617319 (Version 1)
Quarter: 2013Q4

REPORT INFORMATION
  Report Type: Spontaneous
  Country: US (occurrence: US)
  Receive Date: 20131011
  Receipt Date: 20131011
  Transmission Date: 20140711
  Serious: Yes (Hospitalization)
  Sender: FDA-Public Use
  Company Number: US-BRISTOL-MYERS SQUIBB COMPANY-19517374

PATIENT
  Age: 66 Year
  Sex: Male

DRUGS (16)
  1. COUMADIN [Suspect]
  2. METFORMIN HCL [Interacting]
  3. PLAVIX [Interacting]
  4. FUROSEMIDE [Interacting]
     Indication: CARDIAC FAILURE CONGESTIVE
     Route: 048
  5. NIASPAN [Interacting]
  6. GLIPIZIDE [Interacting]
  7. NEXIUM [Interacting]
  8. DILTIAZEM HCL [Interacting]
  9. ENALAPRIL [Interacting]
  10. DIGOXIN [Interacting]
  11. CRESTOR [Interacting]
  12. POTASSIUM [Interacting]
  13. ACTOS [Interacting]
  14. VICTOZA [Interacting]
  15. ORLISTAT [Interacting]
     Indication: WEIGHT DECREASED
     Dosage: CAPS
     Route: 048
  16. ALLERGY SHOTS [Interacting]

REACTIONS (2)
  - Cardiac failure congestive [Unknown]
  - Drug interaction [Unknown]
